FAERS Safety Report 8236238-5 (Version None)
Quarter: 2012Q1

REPORT INFORMATION
  Report Type: 
  Country: None (occurrence: None)
  Receive Date: 20120327
  Receipt Date: 20120312
  Transmission Date: 20120608
  Serious: Yes (Other)
  Sender: FDA-Public Use
  Company Number: PHHY2012JP020468

PATIENT
  Age: 28 Year
  Sex: Male

DRUGS (10)
  1. RITUXAN [Concomitant]
     Dosage: 375 MG/M2, A TOTAL OF 8 DOSES
  2. CYCLOSPORINE [Suspect]
     Dosage: UNK UKN, UNK
  3. CYCLOPHOSPHAMIDE [Concomitant]
  4. NEUPOGEN [Concomitant]
  5. THYMOGLOBULIN [Concomitant]
     Dosage: 3.5 MG/KG, FOR 5 DAYS
     Dates: start: 20110101
  6. FLUDARABINE PHOSPHATE [Concomitant]
     Dosage: 180 MG/M2, UNK
  7. GAMMA IRRADIATION [Concomitant]
     Dosage: 4 GY, UNK
  8. CYCLOSPORINE [Suspect]
     Indication: APLASTIC ANAEMIA
     Dosage: UNK UKN, UNK
     Route: 048
     Dates: start: 20110101
  9. TACROLIMUS [Concomitant]
     Indication: PROPHYLAXIS AGAINST GRAFT VERSUS HOST DISEASE
  10. METHOTREXATE [Concomitant]
     Indication: PROPHYLAXIS AGAINST GRAFT VERSUS HOST DISEASE

REACTIONS (10)
  - PERICARDIAL EFFUSION [None]
  - RENAL FAILURE CHRONIC [None]
  - HAEMOSIDEROSIS [None]
  - DIFFUSE LARGE B-CELL LYMPHOMA [None]
  - CARDIAC FAILURE CHRONIC [None]
  - VIRAL HAEMORRHAGIC CYSTITIS [None]
  - ABDOMINAL DISCOMFORT [None]
  - EPSTEIN-BARR VIRUS INFECTION [None]
  - GASTRIC NEOPLASM [None]
  - LYMPHOPROLIFERATIVE DISORDER [None]
